FAERS Safety Report 4844329-1 (Version None)
Quarter: 2005Q4

REPORT INFORMATION
  Report Type: 
  Country: None (occurrence: None)
  Receive Date: 20051202
  Receipt Date: 20051123
  Transmission Date: 20060501
  Serious: Yes (Hospitalization)
  Sender: FDA-Public Use
  Company Number: US-MERCK-0511USA04233

PATIENT
  Age: 50 Year
  Sex: Female
  Weight: 101 kg

DRUGS (1)
  1. VIOXX [Suspect]
     Indication: MONARTHRITIS
     Route: 048
     Dates: start: 20010301, end: 20020601

REACTIONS (2)
  - CEREBROVASCULAR ACCIDENT [None]
  - CHEST PAIN [None]
